FAERS Safety Report 11174106 (Version 1)
Quarter: 2015Q2

REPORT INFORMATION
  Report Type: Spontaneous
  Country: DE (occurrence: DE)
  Receive Date: 20150609
  Receipt Date: 20150609
  Transmission Date: 20150821
  Serious: Yes (Hospitalization)
  Sender: FDA-Public Use
  Company Number: DE-ELI_LILLY_AND_COMPANY-DE201505010380

PATIENT
  Sex: Male

DRUGS (11)
  1. TORASEMIDE [Concomitant]
     Active Substance: TORSEMIDE
  2. NOVALGIN [Concomitant]
     Active Substance: METAMIZOLE SODIUM
  3. INSPRA [Concomitant]
     Active Substance: EPLERENONE
  4. RAMIPRIL. [Concomitant]
     Active Substance: RAMIPRIL
  5. METOPROLOLSUCCINAT 1 A PHARMA [Concomitant]
  6. TRULICITY [Suspect]
     Active Substance: DULAGLUTIDE
     Indication: DIABETES MELLITUS
     Dosage: 0.75 MG, UNKNOWN
     Route: 058
  7. MARCUMAR [Concomitant]
     Active Substance: PHENPROCOUMON
  8. PLAVIX [Concomitant]
     Active Substance: CLOPIDOGREL BISULFATE
  9. TAMSULOSIN AL [Concomitant]
  10. ATORVASTATIN [Concomitant]
     Active Substance: ATORVASTATIN
  11. DIGIMERCK [Concomitant]
     Active Substance: DIGITOXIN

REACTIONS (4)
  - Throat tightness [Unknown]
  - Malaise [Unknown]
  - Palpitations [Recovered/Resolved]
  - Injection site haemorrhage [Unknown]
